FAERS Safety Report 16354977 (Version 2)
Quarter: 2020Q1

REPORT INFORMATION
  Report Type: Spontaneous
  Country: US (occurrence: US)
  Receive Date: 20190524
  Receipt Date: 20200219
  Transmission Date: 20200409
  Serious: Yes (Other)
  Sender: FDA-Public Use
  Company Number: US-BTG-201900086

PATIENT
  Age: 67 Year
  Sex: Male

DRUGS (2)
  1. CROFAB [Suspect]
     Active Substance: CROTALIDAE POLYVALENT IMMUNE FAB (OVINE)
     Indication: SNAKE BITE
     Dosage: 4 VIALS AT 2010
     Route: 065
     Dates: start: 20190518
  2. CROFAB [Suspect]
     Active Substance: CROTALIDAE POLYVALENT IMMUNE FAB (OVINE)
     Indication: SNAKE BITE
     Dosage: 2 VIALS
     Route: 065
     Dates: start: 20190518

REACTIONS (6)
  - Oedema [Unknown]
  - Chest discomfort [Unknown]
  - Peripheral swelling [Unknown]
  - Bradycardia [Unknown]
  - Puncture site pain [Unknown]
  - Hypotension [Unknown]

NARRATIVE: CASE EVENT DATE: 20190518
